FAERS Safety Report 17641833 (Version 1)
Quarter: 2020Q2

REPORT INFORMATION
  Report Type: Spontaneous
  Country: AU (occurrence: AU)
  Receive Date: 20200407
  Receipt Date: 20200407
  Transmission Date: 20200713
  Serious: Yes (Other)
  Sender: FDA-Public Use
  Company Number: AU-ALEXION PHARMACEUTICALS INC.-A202004808

PATIENT
  Sex: Female

DRUGS (1)
  1. SOLIRIS [Suspect]
     Active Substance: ECULIZUMAB
     Indication: PAROXYSMAL NOCTURNAL HAEMOGLOBINURIA
     Route: 065

REACTIONS (5)
  - Haemoglobin decreased [Unknown]
  - Drug ineffective [Unknown]
  - Amnesia [Unknown]
  - Myelodysplastic syndrome [Unknown]
  - Haemolysis [Unknown]

NARRATIVE: CASE EVENT DATE: 2011
